FAERS Safety Report 16029673 (Version 1)
Quarter: 2019Q1

REPORT INFORMATION
  Report Type: Spontaneous
  Country: US (occurrence: US)
  Receive Date: 20190204
  Receipt Date: 20190204
  Transmission Date: 20190418
  Serious: Yes (Hospitalization)
  Sender: FDA-Public Use
  Company Number: None

PATIENT
  Age: 63 Year
  Sex: Male

DRUGS (4)
  1. AMLOPDIPINE [Concomitant]
  2. CHLORTHALID [Concomitant]
     Active Substance: CHLORTHALIDONE
  3. ESBRIET [Suspect]
     Active Substance: PIRFENIDONE
     Indication: IDIOPATHIC PULMONARY FIBROSIS
     Route: 051
     Dates: start: 20181023
  4. LOSARTAN. [Concomitant]
     Active Substance: LOSARTAN

REACTIONS (3)
  - Cough [None]
  - Atrial fibrillation [None]
  - Pain [None]

NARRATIVE: CASE EVENT DATE: 20190129
